FAERS Safety Report 12636263 (Version 1)
Quarter: 2016Q3

REPORT INFORMATION
  Report Type: Spontaneous
  Country: IT (occurrence: IT)
  Receive Date: 20160809
  Receipt Date: 20160809
  Transmission Date: 20161109
  Serious: Yes (Other)
  Sender: FDA-Public Use
  Company Number: IT-RECKITT BENCKISER HEALTHCARE INT LIMITED-RB-89014-2016

PATIENT
  Age: 21 Year
  Sex: Female

DRUGS (2)
  1. UNSPECIFIED FLURBIPROFEN [Suspect]
     Active Substance: FLURBIPROFEN
     Indication: OROPHARYNGEAL PAIN
     Dosage: 1 DF, SINGLE
     Route: 048
     Dates: start: 20160711, end: 20160711
  2. AZITHROMYCIN ANHYDROUS. [Concomitant]
     Active Substance: AZITHROMYCIN ANHYDROUS
     Indication: PHARYNGITIS
     Dosage: 1 DF, QD
     Route: 048
     Dates: start: 20160710, end: 20160711

REACTIONS (2)
  - Face oedema [Recovering/Resolving]
  - Medication error [Recovering/Resolving]

NARRATIVE: CASE EVENT DATE: 20160711
